FAERS Safety Report 4947502-7 (Version None)
Quarter: 2006Q1

REPORT INFORMATION
  Report Type: 
  Country: None (occurrence: None)
  Receive Date: 20060320
  Receipt Date: 20060118
  Transmission Date: 20060701
  Serious: Yes (Life-Threatening, Hospitalization)
  Sender: FDA-Public Use
  Company Number: US-BOEHRINGER INGELHEIM PHARMACEUTICALS, INC.-2006-BP-00672BP

PATIENT
  Age: 65 Year
  Sex: Female
  Weight: 94.35 kg

DRUGS (1)
  1. CATAPRES-TTS-1 [Suspect]
     Indication: HYPERTENSION
     Route: 061
     Dates: start: 20050101

REACTIONS (1)
  - BLOOD PRESSURE INCREASED [None]
